FAERS Safety Report 9184774 (Version 3)
Quarter: 2013Q2

REPORT INFORMATION
  Report Type: Spontaneous
  Country: US (occurrence: US)
  Receive Date: 20130325
  Receipt Date: 20130502
  Transmission Date: 20140414
  Serious: Yes (Death, Hospitalization)
  Sender: FDA-Public Use
  Company Number: US-GILEAD-2013-0070535

PATIENT
  Sex: Female

DRUGS (15)
  1. LETAIRIS [Suspect]
     Indication: PRODUCT USED FOR UNKNOWN INDICATION
     Dosage: 5 MG, QD
     Route: 048
     Dates: start: 20121102
  2. AMLODIPINE [Concomitant]
     Dosage: 5 MG, PRN
     Route: 048
  3. ASPIRIN [Concomitant]
     Dosage: 81 MG, QD
     Route: 048
  4. CALCIUM + VIT D [Concomitant]
  5. DIOVAN HCT [Concomitant]
  6. FEMARA [Concomitant]
     Dosage: 2.5 MG, QD
     Route: 048
  7. FUROSEMIDE [Concomitant]
     Dosage: 40 MG, QD
     Route: 048
  8. GABAPENTIN [Concomitant]
     Dosage: 300 MG, BID
     Route: 048
  9. METOPROLOL [Concomitant]
     Dosage: 25 MG, QD
     Route: 048
  10. NAPROSYN /00256201/ [Concomitant]
     Dosage: 500 MG, BID
     Route: 048
  11. OCUVITE                            /01053801/ [Concomitant]
  12. OMEPRAZOLE [Concomitant]
     Dosage: 20 MG, QD
     Route: 048
  13. SPIRONOLACTONE [Concomitant]
     Dosage: 25 MG, BID
     Route: 048
  14. SYNTHROID [Concomitant]
  15. TRAVATAN [Concomitant]

REACTIONS (8)
  - Death [Fatal]
  - Pulmonary hypertension [Unknown]
  - Hypotension [Unknown]
  - Lethargy [Unknown]
  - Mental status changes [Unknown]
  - Cardiac failure congestive [Unknown]
  - Oedema peripheral [Unknown]
  - Asthenia [Unknown]
